FAERS Safety Report 5211996-2 (Version None)
Quarter: 2007Q1

REPORT INFORMATION
  Report Type: 
  Country: None (occurrence: None)
  Receive Date: 20070118
  Receipt Date: 20070108
  Transmission Date: 20070707
  Serious: Yes (Life-Threatening, Hospitalization)
  Sender: FDA-Public Use
  Company Number: FR-GLAXOSMITHKLINE-B0454110A

PATIENT
  Age: 81 Year
  Sex: Female

DRUGS (6)
  1. ARIXTRA [Suspect]
     Route: 058
     Dates: start: 20061101
  2. CORDARONE [Concomitant]
  3. DISCOTRINE [Concomitant]
  4. OROCAL D3 [Concomitant]
  5. FORLAX [Concomitant]
  6. TANAKAN [Concomitant]

REACTIONS (8)
  - BREATH SOUNDS ABNORMAL [None]
  - CEREBRAL HAEMORRHAGE [None]
  - COMA [None]
  - EXCORIATION [None]
  - FALL [None]
  - HAEMORRHAGIC STROKE [None]
  - HYDROCEPHALUS [None]
  - VOMITING [None]
